FAERS Safety Report 5710214-6 (Version None)
Quarter: 2008Q2

REPORT INFORMATION
  Report Type: 
  Country: None (occurrence: None)
  Receive Date: 20080418
  Receipt Date: 20080410
  Transmission Date: 20081010
  Serious: Yes (Hospitalization)
  Sender: FDA-Public Use
  Company Number: US-GENENTECH-259029

PATIENT
  Sex: Female
  Weight: 70.295 kg

DRUGS (19)
  1. RITUXAN [Suspect]
     Indication: SYSTEMIC LUPUS ERYTHEMATOSUS
     Dosage: 1 G, SINGLE
     Route: 042
     Dates: start: 20071025
  2. HEPARIN SODIUM [Concomitant]
     Indication: CEREBROVASCULAR ACCIDENT
  3. SOLU-MEDROL [Concomitant]
     Indication: SYSTEMIC LUPUS ERYTHEMATOSUS
     Dosage: 500 MG, SINGLE
     Route: 042
  4. SOLU-MEDROL [Concomitant]
     Dosage: 40 MG, QD
  5. CELLCEPT [Concomitant]
     Indication: SYSTEMIC LUPUS ERYTHEMATOSUS
  6. PREDNISONE [Concomitant]
     Indication: SYSTEMIC LUPUS ERYTHEMATOSUS
     Dosage: 40 MG, UNK
  7. FLUIDS (UNK INGREDIENTS) [Concomitant]
     Indication: LUPUS NEPHRITIS
  8. ACE-INHIBITORS [Concomitant]
     Indication: LUPUS NEPHRITIS
  9. WARFARIN [Concomitant]
     Indication: ANTIPHOSPHOLIPID SYNDROME
  10. ARGATROBAN [Concomitant]
     Indication: ANTIPHOSPHOLIPID SYNDROME
  11. VANCOMYCIN [Concomitant]
     Indication: BACTERAEMIA
  12. CEFTIN [Concomitant]
     Indication: BACTERAEMIA
  13. CEFAZOLIN [Concomitant]
     Indication: BACTERAEMIA
  14. CLONIDINE HCL [Concomitant]
     Indication: HYPERTENSION
  15. COREG [Concomitant]
     Indication: HYPERTENSION
  16. METOPROLOL TARTRATE [Concomitant]
     Indication: HYPERTENSION
  17. DILAUDID [Concomitant]
     Indication: PAIN
  18. OXYCODONE HCL [Concomitant]
     Indication: PAIN
  19. OXYCONTIN [Concomitant]
     Indication: PAIN

REACTIONS (9)
  - BACTERAEMIA [None]
  - GASTROINTESTINAL HAEMORRHAGE [None]
  - HAEMANGIOMA [None]
  - HAEMORRHAGIC CYST [None]
  - ILEUS [None]
  - PERICARDIAL EFFUSION [None]
  - PLEURAL EFFUSION [None]
  - SMALL INTESTINAL OBSTRUCTION [None]
  - URINARY TRACT INFECTION [None]
